FAERS Safety Report 10190078 (Version 2)
Quarter: 2014Q3

REPORT INFORMATION
  Report Type: Spontaneous
  Country: US (occurrence: US)
  Receive Date: 20140522
  Receipt Date: 20140710
  Transmission Date: 20150326
  Serious: Yes (Hospitalization, Other)
  Sender: FDA-Public Use
  Company Number: US-AMGEN-USASP2014037760

PATIENT
  Age: 70 Year
  Sex: Female

DRUGS (1)
  1. ENBREL [Suspect]
     Active Substance: ETANERCEPT
     Indication: RHEUMATOID ARTHRITIS
     Dosage: 50 MG, QWK
     Route: 065
     Dates: start: 19990101

REACTIONS (3)
  - Musculoskeletal stiffness [Recovered/Resolved]
  - Joint range of motion decreased [Recovered/Resolved]
  - Chondropathy [Recovered/Resolved]

NARRATIVE: CASE EVENT DATE: 20140505
